FAERS Safety Report 9561224 (Version 1)
Quarter: 2013Q3

REPORT INFORMATION
  Report Type: Spontaneous
  Country: US (occurrence: US)
  Receive Date: 20130927
  Receipt Date: 20130927
  Transmission Date: 20140515
  Serious: No
  Sender: FDA-Public Use
  Company Number: US-BIOGENIDEC-2013BI057499

PATIENT
  Age: 22 Year
  Sex: Male

DRUGS (2)
  1. TECFIDERA [Suspect]
     Indication: MULTIPLE SCLEROSIS
     Route: 048
     Dates: start: 201306, end: 201306
  2. AVONEX [Concomitant]
     Route: 030
     Dates: start: 20070809

REACTIONS (2)
  - Rash papular [Not Recovered/Not Resolved]
  - Lip swelling [Not Recovered/Not Resolved]
